FAERS Safety Report 13267437 (Version 1)
Quarter: 2017Q1

REPORT INFORMATION
  Report Type: Spontaneous
  Country: US (occurrence: US)
  Receive Date: 20170224
  Receipt Date: 20170224
  Transmission Date: 20170428
  Serious: Yes (Hospitalization)
  Sender: FDA-Public Use
  Company Number: US-ALVOGEN-2017-ALVOGEN-091615

PATIENT
  Age: 40 Year
  Sex: Female

DRUGS (3)
  1. LASIX [Concomitant]
     Active Substance: FUROSEMIDE
     Indication: HYPERTENSION
  2. ZESTRIL [Suspect]
     Active Substance: LISINOPRIL
     Indication: PRODUCT USED FOR UNKNOWN INDICATION
  3. LIPITOR [Concomitant]
     Active Substance: ATORVASTATIN CALCIUM
     Indication: BLOOD CHOLESTEROL

REACTIONS (3)
  - Swelling face [Unknown]
  - Dyspnoea [Unknown]
  - Lip swelling [Unknown]

NARRATIVE: CASE EVENT DATE: 20170126
